FAERS Safety Report 6722063-0 (Version None)
Quarter: 2010Q2

REPORT INFORMATION
  Report Type: 
  Country: None (occurrence: None)
  Receive Date: 20100512
  Receipt Date: 20100505
  Transmission Date: 20101027
  Serious: Yes (Hospitalization)
  Sender: FDA-Public Use
  Company Number: US-GILEAD-2010-0029004

PATIENT
  Sex: Male

DRUGS (11)
  1. LETAIRIS [Suspect]
     Indication: PULMONARY ARTERIAL HYPERTENSION
     Route: 048
     Dates: start: 20100412
  2. TORSEMIDE [Concomitant]
  3. SPIRONOLACTONE [Concomitant]
  4. CALCIUM CARBONATE [Concomitant]
  5. SIMVASTATIN [Concomitant]
  6. ADVAIR DISKUS 100/50 [Concomitant]
  7. VITAMIN C [Concomitant]
  8. GLUCOSAMINE/CHONDROITIN [Concomitant]
  9. VITAMIN E [Concomitant]
  10. COENZYME Q10 [Concomitant]
  11. ASPIRIN [Concomitant]

REACTIONS (1)
  - RENAL FAILURE [None]
